FAERS Safety Report 16540537 (Version 1)
Quarter: 2019Q3

REPORT INFORMATION
  Report Type: Spontaneous
  Country: DE (occurrence: DE)
  Receive Date: 20190708
  Receipt Date: 20190708
  Transmission Date: 20191004
  Serious: Yes (Death, Hospitalization)
  Sender: FDA-Public Use
  Company Number: DE-ACCORD-137656

PATIENT
  Age: 65 Year
  Sex: Male
  Weight: 99 kg

DRUGS (8)
  1. TORASEMIDE [Suspect]
     Active Substance: TORSEMIDE
     Indication: PRODUCT USED FOR UNKNOWN INDICATION
     Dosage: 20 MG, 1-1-0-0, TABLET
     Route: 048
  2. KALIUM VERLA [Concomitant]
     Active Substance: POTASSIUM CITRATE
     Dosage: 2157.8 MG, 1-0-0-0, SACHET
     Route: 048
  3. SPIRONOLACTONE. [Suspect]
     Active Substance: SPIRONOLACTONE
     Indication: PRODUCT USED FOR UNKNOWN INDICATION
     Dosage: 300 MG, 1-0-0-0, TABLET
     Route: 048
  4. METOCLOPRAMIDE. [Concomitant]
     Active Substance: METOCLOPRAMIDE
     Dosage: 10 MG, 1-0-0-0, TABLET
     Route: 048
  5. RIFAXIMIN. [Concomitant]
     Active Substance: RIFAXIMIN
     Dosage: 550 MG, 1-0-1-0, TABLET
     Route: 048
  6. CARVEDILOL/CARVEDILOL HYDROCHLODRIDE [Concomitant]
     Dosage: 6.25 MG, 1-0-1-0, TABLETS
     Route: 048
  7. LACTULOSE. [Concomitant]
     Active Substance: LACTULOSE
     Dosage: 6.67 G, 1-1-1-0, SYRUP
     Route: 048
  8. PANTOPRAZOLE [Concomitant]
     Active Substance: PANTOPRAZOLE
     Dosage: 40 MG, 1-0-0-0, TABLET
     Route: 048

REACTIONS (7)
  - General physical health deterioration [Unknown]
  - Oedema peripheral [Unknown]
  - Acute kidney injury [Unknown]
  - Renal impairment [Unknown]
  - Electrolyte imbalance [Unknown]
  - Dizziness [Unknown]
  - Ascites [Unknown]
